FAERS Safety Report 17797513 (Version 3)
Quarter: 2020Q2

REPORT INFORMATION
  Report Type: Spontaneous
  Country: JP (occurrence: JP)
  Receive Date: 20200518
  Receipt Date: 20200611
  Transmission Date: 20200714
  Serious: Yes (Death)
  Sender: FDA-Public Use
  Company Number: NVSJ2020JP005038

PATIENT
  Age: 97 Year
  Sex: Female

DRUGS (2)
  1. VOLTAREN SUP [Suspect]
     Active Substance: DICLOFENAC SODIUM
     Indication: PAIN
     Dosage: 25 MG
     Route: 054
     Dates: start: 20200428
  2. VOLTAREN SUP [Suspect]
     Active Substance: DICLOFENAC SODIUM
     Indication: PAIN MANAGEMENT

REACTIONS (6)
  - Back pain [Fatal]
  - Abdominal pain [Fatal]
  - Shock haemorrhagic [Fatal]
  - Infection [Fatal]
  - Blood pressure decreased [Fatal]
  - Intestinal perforation [Fatal]
